FAERS Safety Report 21182975 (Version 4)
Quarter: 2023Q4

REPORT INFORMATION
  Report Type: Report from Study
  Country: DE (occurrence: DE)
  Receive Date: 20220808
  Receipt Date: 20231206
  Transmission Date: 20240110
  Serious: Yes (Hospitalization, Other)
  Sender: FDA-Public Use
  Company Number: DE-NOVARTISPH-NVSC2022DE177992

PATIENT
  Sex: Female

DRUGS (6)
  1. COSENTYX [Suspect]
     Active Substance: SECUKINUMAB
     Indication: Axial spondyloarthritis
     Dosage: 300 MG, QMO
     Route: 065
     Dates: start: 20180712, end: 20220515
  2. COSENTYX [Suspect]
     Active Substance: SECUKINUMAB
     Dosage: 300 MG
     Route: 065
     Dates: start: 20230205
  3. IBUPROFEN [Suspect]
     Active Substance: IBUPROFEN
     Indication: Axial spondyloarthritis
     Dosage: 800 MG
     Route: 065
     Dates: start: 20190215
  4. IBUPROFEN [Suspect]
     Active Substance: IBUPROFEN
     Dosage: 800 MG (7 DAYS PER WEEK)
     Route: 065
     Dates: start: 20191205
  5. ACEMETACIN [Concomitant]
     Active Substance: ACEMETACIN
     Indication: Product used for unknown indication
     Dosage: 60 MG
     Route: 065
     Dates: start: 20180411
  6. ACEMETACIN [Concomitant]
     Active Substance: ACEMETACIN
     Dosage: 90 MG
     Route: 065
     Dates: end: 20190201

REACTIONS (1)
  - Hormone receptor positive HER2 negative breast cancer [Unknown]

NARRATIVE: CASE EVENT DATE: 20220315
